FAERS Safety Report 19299718 (Version 1)
Quarter: 2021Q2

REPORT INFORMATION
  Report Type: Spontaneous
  Country: US (occurrence: US)
  Receive Date: 20210524
  Receipt Date: 20210524
  Transmission Date: 20210717
  Serious: No
  Sender: FDA-Public Use
  Company Number: None

PATIENT
  Age: 75 Year
  Sex: Female

DRUGS (22)
  1. ALBUTEROL HFA [Concomitant]
     Active Substance: ALBUTEROL SULFATE
  2. MONTELUKAST [Concomitant]
     Active Substance: MONTELUKAST SODIUM
  3. TRELEGY ELLIPTA [Concomitant]
     Active Substance: FLUTICASONE FUROATE\UMECLIDINIUM BROMIDE\VILANTEROL TRIFENATATE
  4. ELIQUIS [Concomitant]
     Active Substance: APIXABAN
  5. TRAMADOL. [Concomitant]
     Active Substance: TRAMADOL
  6. IPRATROPIUM ALBUTEROL [Concomitant]
     Active Substance: ALBUTEROL\IPRATROPIUM
  7. LASIX [Concomitant]
     Active Substance: FUROSEMIDE
  8. SYNTHROID [Concomitant]
     Active Substance: LEVOTHYROXINE SODIUM
  9. EYE DROPS ADVANCED RELIEF [Concomitant]
     Active Substance: DEXTRAN 70\POLYETHYLENE GLYCOL 400\POVIDONE\TETRAHYDROZOLINE HYDROCHLORIDE
  10. FLUTICASONE?SALMETEROL [Concomitant]
  11. COENZYME Q10 [Concomitant]
     Active Substance: DIETARY SUPPLEMENT\UBIDECARENONE
  12. JARDIANCE [Concomitant]
     Active Substance: EMPAGLIFLOZIN
  13. PROBIOTIC [Concomitant]
     Active Substance: PROBIOTICS NOS
  14. ASPIRIN. [Concomitant]
     Active Substance: ASPIRIN
  15. ATORVASTATIN [Concomitant]
     Active Substance: ATORVASTATIN
  16. LORATADINE. [Concomitant]
     Active Substance: LORATADINE
  17. MULTIVITAMIN/MINERAL [Concomitant]
  18. ALYQ [Concomitant]
     Active Substance: TADALAFIL
  19. DALIRESP [Concomitant]
     Active Substance: ROFLUMILAST
  20. IBU [Concomitant]
     Active Substance: IBUPROFEN
  21. AMBRISENTAN [Suspect]
     Active Substance: AMBRISENTAN
     Indication: PULMONARY ARTERIAL HYPERTENSION
     Route: 048
  22. THEOPHYLLINE ER [Concomitant]
     Active Substance: THEOPHYLLINE ANHYDROUS

REACTIONS (1)
  - COVID-19 [None]

NARRATIVE: CASE EVENT DATE: 20210524
